FAERS Safety Report 9009872 (Version 2)
Quarter: 2013Q1

REPORT INFORMATION
  Report Type: Spontaneous
  Country: US (occurrence: US)
  Receive Date: 20130111
  Receipt Date: 20130131
  Transmission Date: 20140127
  Serious: Yes (Hospitalization)
  Sender: FDA-Public Use
  Company Number: US-FRI-1000041461

PATIENT
  Age: 78 Year
  Sex: Male

DRUGS (27)
  1. CITALOPRAM [Suspect]
     Indication: DEPRESSION
     Dosage: 20 MG
     Route: 048
     Dates: start: 20120827
  2. ENZALUTAMIDE [Suspect]
     Indication: PROSTATE CANCER
     Route: 048
     Dates: start: 20120911, end: 20121024
  3. ENZALUTAMIDE [Suspect]
     Dosage: 160 MG
     Route: 048
     Dates: start: 20121110
  4. PRISTIQ [Suspect]
     Dates: start: 20121012, end: 20121015
  5. AMBIEN [Concomitant]
     Indication: INSOMNIA
     Dosage: 5 MG
     Route: 048
     Dates: start: 2010
  6. AMBIEN [Concomitant]
     Dosage: 10 MG
     Route: 048
     Dates: start: 2011
  7. ASTEPRO [Concomitant]
     Indication: HYPERSENSITIVITY
     Dosage: 205.5 MCG
     Route: 048
     Dates: start: 201202
  8. ASTEPRO [Concomitant]
     Indication: ASTHMA
  9. FLUTICASONE [Concomitant]
     Indication: HYPERSENSITIVITY
     Dosage: 50 MCG (1 SPRAY EACH NOSTRIL)
     Route: 045
     Dates: start: 2008
  10. FLUTICASONE [Concomitant]
     Indication: ASTHMA
  11. TAMSULOSIN [Concomitant]
     Indication: URINE FLOW DECREASED
     Dosage: 4 MG
     Route: 048
     Dates: start: 2009
  12. VESICARE [Concomitant]
     Indication: NOCTURIA
     Dosage: 5 MG
     Route: 048
     Dates: start: 201202
  13. BETAMETHASONE [Concomitant]
     Indication: ECZEMA
     Dosage: 0.05 % AS REQUIRED
     Route: 061
     Dates: start: 2010
  14. ASPIRIN [Concomitant]
     Indication: CARDIOVASCULAR EVENT PROPHYLAXIS
     Dosage: 81 MG
     Route: 048
     Dates: start: 2011
  15. CALCIUM PLUS D3 [Concomitant]
     Indication: SUPPLEMENTATION THERAPY
     Dosage: 600 MG/400 IU
     Route: 048
     Dates: start: 2011
  16. VITAMIN D3 [Concomitant]
     Indication: SUPPLEMENTATION THERAPY
     Dosage: 1000 IU
     Route: 048
     Dates: start: 2011
  17. FEXOFENADINE HCL [Concomitant]
     Indication: HYPERSENSITIVITY
     Dosage: 180 MG
     Route: 048
     Dates: start: 2011
  18. FEXOFENADINE HCL [Concomitant]
     Indication: ASTHMA
  19. FLAXSEED OIL [Concomitant]
     Indication: SUPPLEMENTATION THERAPY
     Dosage: 1300 MG
     Route: 048
     Dates: start: 2011
  20. LUTEIN ZEAXANTHIN [Concomitant]
     Indication: SUPPLEMENTATION THERAPY
     Dosage: 25 MG / 5 MG
     Route: 048
     Dates: start: 2011
  21. PROBIOTIC DIGESTIVE SUPPLEMENT [Concomitant]
     Indication: SUPPLEMENTATION THERAPY
     Route: 048
     Dates: start: 2011
  22. ACETAMINOPHEN [Concomitant]
     Indication: BACK PAIN
     Dosage: 650 MG AS REQUIRED
     Route: 048
     Dates: start: 201209, end: 20121006
  23. HYDROCODONE APAP [Concomitant]
     Indication: BACK PAIN
     Dosage: 5/500 MG AS REQUIRED
     Route: 048
     Dates: start: 20121006
  24. DENOSUMAB [Concomitant]
     Indication: OSTEOPOROSIS PROPHYLAXIS
     Dosage: 0.3333 MG
     Route: 058
     Dates: start: 20120911
  25. CLOBETASOL PROPIONATE [Concomitant]
     Indication: ECZEMA
     Dosage: 0.0036 %
     Route: 061
     Dates: start: 2011
  26. DIGESTIVE ENZYME [Concomitant]
     Indication: MEDICAL DIET
     Route: 048
     Dates: start: 2011
  27. METHOCARBAMOL [Concomitant]
     Indication: BACK PAIN
     Dosage: 500 MG AS REQUIRED
     Route: 048
     Dates: start: 20121006

REACTIONS (6)
  - Inappropriate antidiuretic hormone secretion [Recovered/Resolved]
  - Duodenal ulcer [Recovered/Resolved]
  - Fall [Unknown]
  - Gastritis [Unknown]
  - Oesophagitis [Unknown]
  - Hypertension [Unknown]
